FAERS Safety Report 14769560 (Version 1)
Quarter: 2018Q2

REPORT INFORMATION
  Report Type: Spontaneous
  Country: IE (occurrence: IE)
  Receive Date: 20180417
  Receipt Date: 20180417
  Transmission Date: 20180711
  Serious: Yes (Other)
  Sender: FDA-Public Use
  Company Number: IE-CELLTRION INC.-2018IE019233

PATIENT

DRUGS (1)
  1. INFLECTRA [Suspect]
     Active Substance: INFLIXIMAB-DYYB
     Indication: PRODUCT USED FOR UNKNOWN INDICATION
     Dosage: 340 MG, CYCLIC, OVER 2 HOURS
     Route: 065
     Dates: end: 20180409

REACTIONS (3)
  - Flushing [Unknown]
  - Hypertension [Unknown]
  - Palpitations [Unknown]

NARRATIVE: CASE EVENT DATE: 20180409
